FAERS Safety Report 8902989 (Version 2)
Quarter: 2012Q4

REPORT INFORMATION
  Report Type: 
  Country: US (occurrence: US)
  Receive Date: 20121112
  Receipt Date: 20121116
  Transmission Date: 20130627
  Serious: No
  Sender: FDA-Public Use
  Company Number: US-BIOGENIDEC-2012BI050881

PATIENT
  Age: 39 Year
  Sex: Female

DRUGS (5)
  1. TYSABRI [Suspect]
     Indication: MULTIPLE SCLEROSIS
     Route: 042
     Dates: start: 20100528
  2. VICODIN [Concomitant]
     Indication: HEADACHE
     Dates: start: 2009
  3. DARVOCET [Concomitant]
     Indication: HEADACHE
  4. PERCOCET [Concomitant]
     Indication: HEADACHE
  5. TRAMADOL [Concomitant]
     Indication: HEADACHE

REACTIONS (4)
  - Lethargy [Recovered/Resolved]
  - Muscle spasms [Recovered/Resolved]
  - Fatigue [Recovered/Resolved]
  - Headache [Not Recovered/Not Resolved]
